FAERS Safety Report 10052106 (Version 1)
Quarter: 2014Q2

REPORT INFORMATION
  Report Type: Spontaneous
  Country: US (occurrence: None)
  Receive Date: 20140401
  Receipt Date: 20140401
  Transmission Date: 20141212
  Serious: Yes (Congenital Anomaly)
  Sender: FDA-Public Use
  Company Number: None

PATIENT
  Age: 20 Year
  Sex: Female
  Weight: 75 kg

DRUGS (1)
  1. SPRYCEL DASQTINIB [Suspect]
     Indication: CHRONIC MYELOID LEUKAEMIA
     Dates: start: 20130812, end: 20140316

REACTIONS (1)
  - Treatment noncompliance [None]
